FAERS Safety Report 17420704 (Version 4)
Quarter: 2022Q2

REPORT INFORMATION
  Report Type: Spontaneous
  Country: US (occurrence: US)
  Receive Date: 20200214
  Receipt Date: 20220502
  Transmission Date: 20220721
  Serious: No
  Sender: FDA-Public Use
  Company Number: US-PFIZER INC-2019122254

PATIENT
  Age: 86 Year
  Sex: Female
  Weight: 58.957 kg

DRUGS (2)
  1. LYRICA [Suspect]
     Active Substance: PREGABALIN
     Indication: Neuropathy peripheral
     Dosage: 300 MG, 2X/DAY (ONE IN MORNING WITH BREAKFAST AND ONE WITH SUPPER)
     Route: 048
  2. LYRICA [Suspect]
     Active Substance: PREGABALIN
     Dosage: 1 DF, 1X/DAY

REACTIONS (4)
  - Memory impairment [Unknown]
  - Intentional product use issue [Unknown]
  - Product dose omission issue [Unknown]
  - Intentional product misuse [Unknown]
